FAERS Safety Report 19071354 (Version 1)
Quarter: 2021Q1

REPORT INFORMATION
  Report Type: Spontaneous
  Country: US (occurrence: US)
  Receive Date: 20210330
  Receipt Date: 20210330
  Transmission Date: 20210420
  Serious: No
  Sender: FDA-Public Use
  Company Number: US-DRREDDYS-USA/USA/21/0133007

PATIENT
  Age: 22 Year
  Sex: Female

DRUGS (1)
  1. ZENATANE [Suspect]
     Active Substance: ISOTRETINOIN
     Indication: PRODUCT USED FOR UNKNOWN INDICATION
     Dosage: RMA ISSUE DATE: 10/26/2020 5:23:14 PM, 12/3/2020 6:17:14 PM, 1/8/2021 2:04:58 PM, 2/3/2021 6:45:08 P
     Route: 048

REACTIONS (2)
  - Thyroid function test abnormal [Unknown]
  - Weight decreased [Unknown]
